FAERS Safety Report 20774464 (Version 17)
Quarter: 2022Q4

REPORT INFORMATION
  Report Type: Spontaneous
  Country: US (occurrence: US)
  Receive Date: 20220502
  Receipt Date: 20221222
  Transmission Date: 20230113
  Serious: No
  Sender: FDA-Public Use
  Company Number: US-PFIZER INC-202200596572

PATIENT
  Age: 68 Year
  Sex: Female
  Weight: 80.74 kg

DRUGS (5)
  1. GENOTROPIN [Suspect]
     Active Substance: SOMATROPIN
     Indication: Growth hormone deficiency
     Dosage: 13.8 MG, 1X/DAY
     Dates: start: 202203
  2. GENOTROPIN [Suspect]
     Active Substance: SOMATROPIN
     Indication: Adrenal disorder
     Dosage: 0.4 MG (ONE TIME EVERY SUNDAY)
  3. GENOTROPIN [Suspect]
     Active Substance: SOMATROPIN
     Dosage: UNK
  4. GENOTROPIN [Suspect]
     Active Substance: SOMATROPIN
     Dosage: 0.4 MG, DAILY
  5. GENOTROPIN [Suspect]
     Active Substance: SOMATROPIN
     Dosage: 0.5 UNK, DAILY

REACTIONS (9)
  - Overdose [Unknown]
  - Device use error [Unknown]
  - Product dose omission issue [Not Recovered/Not Resolved]
  - Device use issue [Unknown]
  - Accidental exposure to product [Unknown]
  - Exposure via skin contact [Unknown]
  - Device breakage [Unknown]
  - Drug dose omission by device [Unknown]
  - Off label use [Unknown]

NARRATIVE: CASE EVENT DATE: 20220301
